FAERS Safety Report 24907707 (Version 2)
Quarter: 2025Q1

REPORT INFORMATION
  Report Type: Spontaneous
  Country: US (occurrence: US)
  Receive Date: 20250131
  Receipt Date: 20250218
  Transmission Date: 20250409
  Serious: Yes (Other)
  Sender: BRISTOL-MYERS SQUIBB COMPANY
  Company Number: US-BRISTOL-MYERS SQUIBB COMPANY-2025-014543

PATIENT
  Age: 77 Year
  Sex: Male
  Weight: 82.55 kg

DRUGS (1)
  1. REVLIMID [Suspect]
     Active Substance: LENALIDOMIDE
     Indication: Plasma cell myeloma
     Dosage: 3 WEEKS ON, 1 WEEK OFF
     Route: 048

REACTIONS (2)
  - Pneumonia [Unknown]
  - White blood cell count decreased [Unknown]
